FAERS Safety Report 25654527 (Version 1)
Quarter: 2025Q3

REPORT INFORMATION
  Report Type: Spontaneous
  Country: US (occurrence: None)
  Receive Date: 20250806
  Receipt Date: 20250806
  Transmission Date: 20251020
  Serious: Yes (Other)
  Sender: FDA-CTU
  Company Number: None

PATIENT
  Age: 66 Year
  Sex: Female

DRUGS (3)
  1. RETEVMO [Suspect]
     Active Substance: SELPERCATINIB
     Dosage: FREQUENCY : TWICE A DAY;?
  2. ATORVASTATIN [Suspect]
     Active Substance: ATORVASTATIN
  3. MOUNJARO [Suspect]
     Active Substance: TIRZEPATIDE

REACTIONS (3)
  - Aspartate aminotransferase increased [None]
  - Alanine aminotransferase increased [None]
  - Off label use [None]
